FAERS Safety Report 6640079-X (Version None)
Quarter: 2010Q1

REPORT INFORMATION
  Report Type: 
  Country: None (occurrence: None)
  Receive Date: 20100318
  Receipt Date: 20100308
  Transmission Date: 20100710
  Serious: Yes (Death, Hospitalization)
  Sender: FDA-Public Use
  Company Number: FR-ROCHE-242025

PATIENT
  Sex: Female
  Weight: 57 kg

DRUGS (5)
  1. ROACCUTANE [Suspect]
     Indication: ACNE
     Route: 048
     Dates: start: 19960115, end: 19961015
  2. VARNOLINE [Suspect]
     Indication: CONTRACEPTION
     Route: 048
     Dates: start: 19940611
  3. DIANE 35 [Suspect]
     Route: 048
  4. KREDEX [Concomitant]
     Dates: start: 20000401
  5. ALDACTONE [Concomitant]
     Dates: start: 20000401

REACTIONS (2)
  - CONGESTIVE CARDIOMYOPATHY [None]
  - PULMONARY HYPERTENSION [None]
